FAERS Safety Report 23907275 (Version 2)
Quarter: 2024Q3

REPORT INFORMATION
  Report Type: Report from Study
  Country: CO (occurrence: CO)
  Receive Date: 20240528
  Receipt Date: 20240710
  Transmission Date: 20241017
  Serious: Yes (Hospitalization)
  Sender: ASTELLAS
  Company Number: CO-ASTELLAS-2024US014810

PATIENT
  Age: 55 Year
  Sex: Female
  Weight: 58 kg

DRUGS (2)
  1. TACROLIMUS [Suspect]
     Active Substance: TACROLIMUS
     Indication: Renal transplant
     Dosage: 8 MG, ONCE DAILY (3 MG (1 CAPSULE) AND 5 MG (1 CAPSULE))
     Route: 048
     Dates: start: 20120914, end: 202312
  2. TACROLIMUS [Suspect]
     Active Substance: TACROLIMUS
     Dosage: 6 MG, ONCE DAILY (2X 3 MG CAPSULES)
     Route: 048
     Dates: start: 202312

REACTIONS (4)
  - Discouragement [Unknown]
  - Blood glucose decreased [Unknown]
  - Blood pressure decreased [Unknown]
  - Gastroenteritis [Unknown]
